FAERS Safety Report 8588087-6 (Version None)
Quarter: 2012Q3

REPORT INFORMATION
  Report Type: 
  Country: None (occurrence: None)
  Receive Date: 20120813
  Receipt Date: 20120810
  Transmission Date: 20120928
  Serious: No
  Sender: FDA-Public Use
  Company Number: US-PFIZER INC-2012195966

PATIENT
  Age: 52 Year
  Sex: Female

DRUGS (6)
  1. PREVACID [Concomitant]
     Indication: GASTROOESOPHAGEAL REFLUX DISEASE
     Dosage: UNK
  2. CELEBREX [Suspect]
     Indication: ARTHRITIS
     Dosage: 100 MG, 1X/DAY
     Route: 048
     Dates: end: 20120701
  3. NEURONTIN [Suspect]
     Indication: NERVE INJURY
     Dosage: 600 MG, 3X/DAY
     Route: 048
  4. CELEBREX [Suspect]
     Dosage: UNK
     Route: 048
     Dates: end: 20120701
  5. NEURONTIN [Suspect]
     Dosage: UNK
     Route: 048
  6. SINGULAIR [Concomitant]
     Indication: ASTHMA
     Dosage: UNK

REACTIONS (2)
  - ARTHRITIS [None]
  - PAIN [None]
